FAERS Safety Report 25260435 (Version 1)
Quarter: 2025Q2

REPORT INFORMATION
  Report Type: Spontaneous
  Country: IT (occurrence: IT)
  Receive Date: 20250501
  Receipt Date: 20250501
  Transmission Date: 20250717
  Serious: Yes (Death, Other)
  Sender: AMGEN
  Company Number: IT-AMGEN-ITASP2025082294

PATIENT

DRUGS (1)
  1. BEVACIZUMAB [Suspect]
     Active Substance: BEVACIZUMAB
     Indication: Ovarian cancer
     Route: 065

REACTIONS (9)
  - Death [Fatal]
  - Post procedural complication [Unknown]
  - Anastomotic leak [Unknown]
  - Anaemia postoperative [Unknown]
  - Intra-abdominal fluid collection [Unknown]
  - Pancreatic fistula [Unknown]
  - Dehydration [Unknown]
  - Gastrointestinal stoma complication [Unknown]
  - Impaired quality of life [Unknown]
